FAERS Safety Report 19464274 (Version 1)
Quarter: 2021Q2

REPORT INFORMATION
  Report Type: Spontaneous
  Country: IT (occurrence: IT)
  Receive Date: 20210627
  Receipt Date: 20210627
  Transmission Date: 20210717
  Serious: Yes (Other)
  Sender: FDA-Public Use
  Company Number: NVSC2021IT141637

PATIENT
  Age: 74 Year
  Sex: Female
  Weight: 78 kg

DRUGS (9)
  1. LEDERFOLIN [Concomitant]
     Active Substance: LEUCOVORIN CALCIUM
     Indication: METAPLASTIC BREAST CARCINOMA
     Dosage: 273.2 MG,CYCLIC
     Route: 042
     Dates: start: 20210302, end: 20210302
  2. OXALIPLATIN. [Suspect]
     Active Substance: OXALIPLATIN
     Indication: METAPLASTIC BREAST CARCINOMA
     Dosage: 100 MG,CYCLIC
     Route: 042
     Dates: start: 20210302
  3. FLUOROURACIL. [Suspect]
     Active Substance: FLUOROURACIL
     Dosage: 3279 MG, CYCLIC
     Route: 042
     Dates: start: 20210302, end: 20210302
  4. PAFINUR [Concomitant]
     Active Substance: RUPATADINE FUMARATE
     Indication: PRODUCT USED FOR UNKNOWN INDICATION
     Dosage: UNK
     Route: 065
  5. FLUOROURACIL. [Suspect]
     Active Substance: FLUOROURACIL
     Indication: METAPLASTIC BREAST CARCINOMA
     Dosage: 546.4 MG, CYCLIC
     Route: 042
     Dates: start: 20210302, end: 20210302
  6. FILGRASTIM [Concomitant]
     Active Substance: FILGRASTIM
     Indication: PRODUCT USED FOR UNKNOWN INDICATION
     Dosage: UNK
     Route: 065
  7. ESCITALOPRAM OXALATE. [Concomitant]
     Active Substance: ESCITALOPRAM OXALATE
     Indication: PRODUCT USED FOR UNKNOWN INDICATION
     Dosage: UNK
     Route: 065
  8. PANTOPRAZOLE [Concomitant]
     Active Substance: PANTOPRAZOLE
     Indication: PRODUCT USED FOR UNKNOWN INDICATION
     Dosage: UNK
     Route: 065
  9. ATENOLOL. [Concomitant]
     Active Substance: ATENOLOL
     Indication: PRODUCT USED FOR UNKNOWN INDICATION
     Dosage: UNK
     Route: 065

REACTIONS (2)
  - Neutropenia [Recovering/Resolving]
  - Thrombocytopenia [Recovering/Resolving]

NARRATIVE: CASE EVENT DATE: 20210315
